FAERS Safety Report 5017910-7 (Version None)
Quarter: 2006Q2

REPORT INFORMATION
  Report Type: 
  Country: None (occurrence: None)
  Receive Date: 20060605
  Receipt Date: 20060525
  Transmission Date: 20061013
  Serious: Yes (Other)
  Sender: FDA-Public Use
  Company Number: 2006AP02399

PATIENT
  Age: 74 Year
  Sex: Female

DRUGS (25)
  1. DIPRIVAN [Suspect]
     Indication: INDUCTION OF ANAESTHESIA
     Route: 042
  2. DIPRIVAN [Suspect]
     Indication: MAINTENANCE OF ANAESTHESIA
     Route: 042
  3. DIPRIVAN [Suspect]
     Route: 042
  4. DIPRIVAN [Suspect]
     Route: 042
  5. TELMISARTAN [Concomitant]
     Indication: HYPERTENSION
     Route: 048
  6. CELIPROLOL HYDROCHLORIDE [Concomitant]
     Indication: HYPERTENSION
     Route: 048
  7. BENIDIPINE HYDROCHLORIDE [Concomitant]
     Indication: HYPERTENSION
     Route: 048
  8. LANDIOLOL HYDROCHLORIDE [Concomitant]
     Indication: HYPERTHYROIDISM
     Route: 042
  9. LANDIOLOL HYDROCHLORIDE [Concomitant]
     Route: 042
  10. FENTANYL [Concomitant]
     Indication: HYPERTHYROIDISM
     Route: 042
  11. FENTANYL [Concomitant]
     Route: 042
  12. MIDAZOLAM HCL [Concomitant]
     Indication: HYPERTHYROIDISM
     Route: 042
  13. MIDAZOLAM HCL [Concomitant]
     Route: 042
  14. VECURONIUM BROMIDE [Concomitant]
     Indication: HYPERTHYROIDISM
     Route: 042
  15. VECURONIUM BROMIDE [Concomitant]
     Route: 042
  16. VERAPAMIL HYDROCHLORIDE [Concomitant]
     Indication: HYPERTHYROIDISM
     Route: 042
  17. PHENYLEPHRINE HYDROCHLORIDE [Concomitant]
  18. GLUCOSE ACETATED RINGERS SOLUTION [Concomitant]
     Route: 058
  19. ALBUMIN (HUMAN) [Concomitant]
     Route: 058
  20. CONCENTRATED HUMAN RED BLOOD CELLS [Concomitant]
     Route: 058
  21. PROPYLTHIOURACIL [Concomitant]
     Route: 048
  22. DIGOXIN [Concomitant]
  23. FUROSEMIDE [Concomitant]
  24. ASPIRIN [Concomitant]
  25. NICORANDIL [Concomitant]
     Route: 048

REACTIONS (8)
  - ATRIAL FIBRILLATION [None]
  - BLOOD CREATINE PHOSPHOKINASE INCREASED [None]
  - BLOOD LACTATE DEHYDROGENASE INCREASED [None]
  - CARDIOMYOPATHY [None]
  - ELECTROCARDIOGRAM ST SEGMENT DEPRESSION [None]
  - PYREXIA [None]
  - TACHYCARDIA [None]
  - THYROTOXIC CRISIS [None]
